FAERS Safety Report 5855531-4 (Version None)
Quarter: 2008Q3

REPORT INFORMATION
  Report Type: 
  Country: None (occurrence: None)
  Receive Date: 20080821
  Receipt Date: 20080805
  Transmission Date: 20090109
  Serious: Yes (Death, Other)
  Sender: FDA-Public Use
  Company Number: 2008BI020000

PATIENT
  Sex: Female

DRUGS (1)
  1. TYSABRI [Suspect]
     Indication: MULTIPLE SCLEROSIS
     Dosage: 300 MG;QW;IV
     Route: 042
     Dates: start: 20070215, end: 20071004

REACTIONS (9)
  - BACK PAIN [None]
  - COMPLETED SUICIDE [None]
  - CONDITION AGGRAVATED [None]
  - FATIGUE [None]
  - INCORRECT DOSE ADMINISTERED [None]
  - INTERVERTEBRAL DISC PROTRUSION [None]
  - LACERATION [None]
  - MULTIPLE SCLEROSIS [None]
  - WEIGHT INCREASED [None]
